FAERS Safety Report 13506412 (Version 1)
Quarter: 2017Q2

REPORT INFORMATION
  Report Type: Spontaneous
  Country: US (occurrence: US)
  Receive Date: 20170502
  Receipt Date: 20170502
  Transmission Date: 20170830
  Serious: No
  Sender: FDA-Public Use
  Company Number: US-ROCHE-1252926

PATIENT
  Sex: Female

DRUGS (7)
  1. LASIX [Concomitant]
     Active Substance: FUROSEMIDE
  2. AVASTIN [Suspect]
     Active Substance: BEVACIZUMAB
     Indication: ADJUVANT THERAPY
     Route: 065
  3. AVASTIN [Suspect]
     Active Substance: BEVACIZUMAB
     Indication: OVARIAN CANCER
  4. DOCETAXEL. [Concomitant]
     Active Substance: DOCETAXEL
     Indication: ADJUVANT THERAPY
  5. DOCETAXEL. [Concomitant]
     Active Substance: DOCETAXEL
     Indication: OVARIAN CANCER
  6. CARBOPLATIN. [Concomitant]
     Active Substance: CARBOPLATIN
     Indication: OVARIAN CANCER
  7. PACLITAXEL. [Concomitant]
     Active Substance: PACLITAXEL
     Indication: OVARIAN CANCER

REACTIONS (3)
  - Diuretic therapy [Unknown]
  - Disease progression [Not Recovered/Not Resolved]
  - Nail toxicity [Recovered/Resolved]
